FAERS Safety Report 4654470-4 (Version None)
Quarter: 2005Q2

REPORT INFORMATION
  Report Type: 
  Country: None (occurrence: None)
  Receive Date: 20050505
  Receipt Date: 20050505
  Transmission Date: 20051028
  Serious: No
  Sender: FDA-Public Use
  Company Number: None

PATIENT
  Age: 77 Year
  Sex: Female
  Weight: 66.2252 kg

DRUGS (3)
  1. FOSAMAX [Suspect]
     Indication: OSTEOPENIA
     Dosage: 70 MG PO QW
     Route: 048
     Dates: start: 20050324
  2. FOSAMAX [Suspect]
     Indication: OSTEOPENIA
     Dosage: 70 MG PO QW
     Route: 048
     Dates: start: 20050401
  3. ATENOLOL [Concomitant]

REACTIONS (3)
  - ARTHRALGIA [None]
  - ARTHRITIS [None]
  - JOINT STIFFNESS [None]
